FAERS Safety Report 12918274 (Version 1)
Quarter: 2016Q4

REPORT INFORMATION
  Report Type: Spontaneous
  Country: DK (occurrence: DK)
  Receive Date: 20161107
  Receipt Date: 20161107
  Transmission Date: 20170207
  Serious: Yes (Hospitalization, Disabling, Other)
  Sender: FDA-Public Use
  Company Number: DK-PFIZER INC-2016511966

PATIENT
  Age: 31 Year
  Sex: Female

DRUGS (5)
  1. OXYNORM [Suspect]
     Active Substance: OXYCODONE HYDROCHLORIDE
     Dosage: 15 MG, UNK
     Route: 042
     Dates: start: 20150917, end: 20150917
  2. MORPHINE SULFATE. [Suspect]
     Active Substance: MORPHINE SULFATE
     Indication: PROCEDURAL PAIN
     Dosage: 35 UNK, UNK
     Route: 048
     Dates: start: 20150917, end: 20150917
  3. MORPHINE HCL [Suspect]
     Active Substance: MORPHINE HYDROCHLORIDE
     Indication: PROCEDURAL PAIN
     Dosage: 35 MG, UNK
     Route: 042
     Dates: start: 20150917, end: 20150917
  4. OXYNORM [Suspect]
     Active Substance: OXYCODONE HYDROCHLORIDE
     Indication: PROCEDURAL PAIN
     Dosage: 10 MG, UNK
     Route: 042
     Dates: start: 20150917, end: 20150917
  5. RAPIFEN /00676302/ [Suspect]
     Active Substance: ALFENTANIL HYDROCHLORIDE
     Indication: PROCEDURAL PAIN
     Dosage: 1 MG, SINGLE
     Route: 042
     Dates: start: 20150917, end: 20150917

REACTIONS (3)
  - Respiratory depression [Recovered/Resolved]
  - Anxiety [Unknown]
  - Depression [Unknown]

NARRATIVE: CASE EVENT DATE: 20150917
